FAERS Safety Report 9878765 (Version 1)
Quarter: 2014Q1

REPORT INFORMATION
  Report Type: Spontaneous
  Country: US (occurrence: US)
  Receive Date: 20140206
  Receipt Date: 20140206
  Transmission Date: 20141002
  Serious: Yes (Hospitalization)
  Sender: FDA-Public Use
  Company Number: US-GLAXOSMITHKLINE-A1058893A

PATIENT
  Age: 30 Year
  Sex: Female

DRUGS (5)
  1. ADVAIR HFA [Suspect]
     Indication: ASTHMA
     Dosage: 1PUFF PER DAY
     Route: 055
  2. VENTOLIN [Suspect]
     Indication: ASTHMA
     Dosage: 2PUFF AS REQUIRED
     Route: 055
  3. ZYRTEC [Concomitant]
  4. CELEXA [Concomitant]
  5. LEVOTHYROXINE [Concomitant]

REACTIONS (5)
  - Arnold-Chiari malformation [Not Recovered/Not Resolved]
  - Asthma [Recovered/Resolved]
  - Headache [Not Recovered/Not Resolved]
  - Brain oedema [Not Recovered/Not Resolved]
  - Drug administration error [Unknown]
